FAERS Safety Report 10338135 (Version 1)
Quarter: 2014Q3

REPORT INFORMATION
  Report Type: Spontaneous
  Country: US (occurrence: None)
  Receive Date: 20140722
  Receipt Date: 20140722
  Transmission Date: 20150326
  Serious: Yes (Other)
  Sender: FDA-Public Use
  Company Number: None

PATIENT
  Age: 35 Year
  Sex: Female
  Weight: 114 kg

DRUGS (8)
  1. DEXAMETHASONE. [Concomitant]
     Active Substance: DEXAMETHASONE
  2. EMEND [Concomitant]
     Active Substance: APREPITANT
  3. PROCHLORPERAZINE. [Concomitant]
     Active Substance: PROCHLORPERAZINE
  4. CISPLATIN. [Concomitant]
     Active Substance: CISPLATIN
  5. LORAZEPAM. [Concomitant]
     Active Substance: LORAZEPAM
  6. ETOPOSIDE. [Concomitant]
     Active Substance: ETOPOSIDE
  7. GRANISETRON [Suspect]
     Active Substance: GRANISETRON
     Indication: PROPHYLAXIS OF NAUSEA AND VOMITING
     Route: 042
     Dates: start: 20140421, end: 20140423
  8. BLEOMYCIN [Concomitant]
     Active Substance: BLEOMYCIN SULFATE

REACTIONS (1)
  - Bradycardia [None]

NARRATIVE: CASE EVENT DATE: 20140424
